FAERS Safety Report 18113039 (Version 5)
Quarter: 2020Q4

REPORT INFORMATION
  Report Type: Spontaneous
  Country: US (occurrence: US)
  Receive Date: 20200805
  Receipt Date: 20201001
  Transmission Date: 20210113
  Serious: Yes (Death, Hospitalization, Other)
  Sender: FDA-Public Use
  Company Number: US-IMMUNOMEDICS, INC.-2020IMMU000479

PATIENT
  Age: 37 Year
  Sex: Female

DRUGS (11)
  1. XARELTO [Concomitant]
     Active Substance: RIVAROXABAN
     Indication: PRODUCT USED FOR UNKNOWN INDICATION
     Dosage: UNK
     Route: 065
     Dates: end: 20200721
  2. PROTONIX [Concomitant]
     Active Substance: PANTOPRAZOLE SODIUM
     Indication: PRODUCT USED FOR UNKNOWN INDICATION
     Dosage: UNK
     Route: 065
  3. TRODELVY [Suspect]
     Active Substance: SACITUZUMAB GOVITECAN-HZIY
     Indication: TRIPLE NEGATIVE BREAST CANCER
     Dosage: 10 MG/KG (TOTAL DOSE 540 MG), DAY 1 AND 8 OF 21 DAY CYCLE
     Route: 065
     Dates: start: 20200630, end: 20200630
  4. TRODELVY [Suspect]
     Active Substance: SACITUZUMAB GOVITECAN-HZIY
     Dosage: 10 MG/KG (TOTAL DOSE 540 MG), DAY 1 AND 8 OF 21 DAY CYCLE
     Route: 065
     Dates: start: 20200729, end: 20200729
  5. TRODELVY [Suspect]
     Active Substance: SACITUZUMAB GOVITECAN-HZIY
     Dosage: 10 MG/KG (TOTAL DOSE 540 MG), DAY 1 AND 8 OF 21 DAY CYCLE
     Route: 065
     Dates: start: 20200707, end: 20200707
  6. ELIQUIS [Concomitant]
     Active Substance: APIXABAN
     Indication: DEEP VEIN THROMBOSIS
     Dosage: UNK
     Route: 065
  7. DEXAMETHASONE. [Concomitant]
     Active Substance: DEXAMETHASONE
     Indication: BRAIN OEDEMA
     Dosage: 24 MG
     Route: 065
  8. TALIMOGENE LAHERPAREPVEC [Concomitant]
     Active Substance: TALIMOGENE LAHERPAREPVEC
     Indication: SKIN LESION
     Dosage: UNK
     Route: 065
  9. CYTOMEL [Concomitant]
     Active Substance: LIOTHYRONINE SODIUM
     Indication: PRODUCT USED FOR UNKNOWN INDICATION
     Dosage: UNK
     Route: 065
  10. TRODELVY [Suspect]
     Active Substance: SACITUZUMAB GOVITECAN-HZIY
     Dosage: 10 MG/KG (TOTAL DOSE 540 MG), DAY 1 AND 8 OF 21 DAY CYCLE
     Route: 065
     Dates: start: 20200722, end: 20200722
  11. SYNTHROID [Concomitant]
     Active Substance: LEVOTHYROXINE SODIUM
     Indication: PRODUCT USED FOR UNKNOWN INDICATION
     Dosage: UNK
     Route: 065

REACTIONS (11)
  - Apnoeic attack [Unknown]
  - Metabolic acidosis [Unknown]
  - Oesophageal haemorrhage [Unknown]
  - Dysphagia [Unknown]
  - Somnolence [Unknown]
  - Confusional state [Unknown]
  - Nausea [Unknown]
  - Vomiting [Unknown]
  - Disease progression [Fatal]
  - Pancytopenia [Unknown]
  - Pain [Unknown]

NARRATIVE: CASE EVENT DATE: 202006
